FAERS Safety Report 15041785 (Version 2)
Quarter: 2022Q2

REPORT INFORMATION
  Report Type: Spontaneous
  Country: IT (occurrence: IT)
  Receive Date: 20180621
  Receipt Date: 20220505
  Transmission Date: 20220721
  Serious: Yes (Other)
  Sender: FDA-Public Use
  Company Number: None

PATIENT
  Age: 73 Year
  Sex: Female

DRUGS (6)
  1. CYCLOSPORINE [Suspect]
     Active Substance: CYCLOSPORINE
     Indication: Thrombocytopenia
     Dosage: UNK
     Route: 065
  2. CYCLOSPORINE [Suspect]
     Active Substance: CYCLOSPORINE
     Indication: Anaemia
     Dosage: UNK
     Route: 048
     Dates: start: 201209
  3. PREDNISONE [Suspect]
     Active Substance: PREDNISONE
     Indication: Thrombocytopenia
     Dosage: UNK
     Route: 065
     Dates: start: 2008
  4. PREDNISONE [Suspect]
     Active Substance: PREDNISONE
     Indication: Anaemia
  5. BENDAMUSTINE HYDROCHLORIDE [Suspect]
     Active Substance: BENDAMUSTINE HYDROCHLORIDE
     Indication: Large granular lymphocytosis
     Dosage: 70 MG/M2, CYCLIC (FOR 2 CONSECUTIVE DAYS EVERY 28 DAYS)
     Route: 042
  6. SULFAMETHOXAZOLE\TRIMETHOPRIM [Concomitant]
     Active Substance: SULFAMETHOXAZOLE\TRIMETHOPRIM
     Indication: Antifungal prophylaxis
     Dosage: UNK
     Route: 065

REACTIONS (5)
  - Vasculitis [Unknown]
  - Escherichia urinary tract infection [Unknown]
  - Hypertransaminasaemia [Unknown]
  - Rash [Unknown]
  - Neutropenia [Unknown]
